FAERS Safety Report 24164159 (Version 1)
Quarter: 2024Q3

REPORT INFORMATION
  Report Type: Spontaneous
  Country: US (occurrence: US)
  Receive Date: 20240801
  Receipt Date: 20240801
  Transmission Date: 20241016
  Serious: No
  Sender: SANOFI AVENTIS
  Company Number: US-SA-SAC20240730000798

PATIENT
  Age: 34 Year
  Sex: Male

DRUGS (7)
  1. DUPIXENT [Suspect]
     Active Substance: DUPILUMAB
     Indication: Dermatitis atopic
     Dosage: 300 MG, QOW
     Route: 058
     Dates: start: 20231010
  2. DESONIDE [Concomitant]
     Active Substance: DESONIDE
  3. ELIDEL [Concomitant]
     Active Substance: PIMECROLIMUS
  4. FLUOCINONIDE [Concomitant]
     Active Substance: FLUOCINONIDE
  5. ZYRTEC [Concomitant]
     Active Substance: CETIRIZINE HYDROCHLORIDE
     Route: 048
  6. TOPICORT [Concomitant]
     Active Substance: DESOXIMETASONE
  7. CLARITIN [Concomitant]
     Active Substance: LORATADINE
     Route: 048

REACTIONS (2)
  - Eczema [Unknown]
  - Product dose omission issue [Unknown]
